FAERS Safety Report 10393523 (Version 1)
Quarter: 2014Q3

REPORT INFORMATION
  Report Type: Spontaneous
  Country: CN (occurrence: CN)
  Receive Date: 20140819
  Receipt Date: 20140819
  Transmission Date: 20150326
  Serious: Yes (Other)
  Sender: FDA-Public Use
  Company Number: ALCN2014CN004662

PATIENT
  Age: 65 Year
  Sex: Female

DRUGS (1)
  1. TOBRADEX [Suspect]
     Active Substance: DEXAMETHASONE\TOBRAMYCIN
     Dosage: UNK
     Route: 047

REACTIONS (13)
  - Ciliary hyperaemia [Unknown]
  - Corneal opacity [Unknown]
  - Visual acuity reduced [Unknown]
  - Eye disorder [Unknown]
  - Corneal perforation [Recovered/Resolved]
  - Ocular hyperaemia [Unknown]
  - Visual impairment [Unknown]
  - Eye pain [Unknown]
  - Lacrimation increased [Unknown]
  - Iris adhesions [Unknown]
  - Corneal disorder [Unknown]
  - Photophobia [Unknown]
  - Lenticular opacities [Unknown]
